FAERS Safety Report 17231619 (Version 2)
Quarter: 2020Q1

REPORT INFORMATION
  Report Type: Spontaneous
  Country: US (occurrence: US)
  Receive Date: 20200103
  Receipt Date: 20200121
  Transmission Date: 20200409
  Serious: Yes (Death, Hospitalization)
  Sender: FDA-Public Use
  Company Number: US-TEVA-2019-US-1160060

PATIENT
  Age: 54 Year
  Sex: Male

DRUGS (3)
  1. CLOFARABINE. [Suspect]
     Active Substance: CLOFARABINE
     Indication: CHRONIC MYELOID LEUKAEMIA
     Route: 065
     Dates: start: 201609
  2. ETOPOSIDE. [Suspect]
     Active Substance: ETOPOSIDE
     Indication: CHRONIC MYELOID LEUKAEMIA
     Route: 065
     Dates: start: 201609
  3. CYTOXAN [Suspect]
     Active Substance: CYCLOPHOSPHAMIDE
     Indication: CHRONIC MYELOID LEUKAEMIA
     Route: 065
     Dates: start: 201609

REACTIONS (10)
  - Aspergillus infection [Fatal]
  - Subarachnoid haemorrhage [Fatal]
  - Encephalitis [Fatal]
  - Enterococcal bacteraemia [Fatal]
  - Pleural effusion [Fatal]
  - Meningorrhagia [Fatal]
  - Cerebral haemorrhage [Fatal]
  - Sepsis [Fatal]
  - Staphylococcal bacteraemia [Fatal]
  - Cerebellar haemorrhage [Fatal]

NARRATIVE: CASE EVENT DATE: 2016
